FAERS Safety Report 19839956 (Version 2)
Quarter: 2021Q3

REPORT INFORMATION
  Report Type: Spontaneous
  Country: US (occurrence: US)
  Receive Date: 20210916
  Receipt Date: 20210920
  Transmission Date: 20211014
  Serious: Yes (Other)
  Sender: FDA-Public Use
  Company Number: US-JNJFOC-20210917202

PATIENT
  Sex: Male

DRUGS (1)
  1. NEUTROGENA ULTRA SHEER BODY MIST SUNSCREEN BROAD SPECTRUM 70 (AVO\HOM\OCTI\OCTO) [Suspect]
     Active Substance: AVOBENZONE\HOMOSALATE\OCTISALATE\OCTOCRYLENE
     Indication: PROPHYLAXIS AGAINST SOLAR RADIATION
     Dosage: UNTIL I FELT I WAS PROTECTED. I USED IT LIBERALLY. DAILY. SOMETIMES MULTIPLE TIMES PER DAY. EVERY HO
     Route: 061

REACTIONS (1)
  - Application site reaction [Recovered/Resolved]
